FAERS Safety Report 8891435 (Version 2)
Quarter: 2013Q1

REPORT INFORMATION
  Report Type: Spontaneous
  Country: US (occurrence: None)
  Receive Date: 20121101
  Receipt Date: 20130301
  Transmission Date: 20140127
  Serious: Yes (Other)
  Sender: FDA-Public Use
  Company Number: MC201200442

PATIENT
  Age: 92 Year
  Sex: Male
  Weight: 61.4 kg

DRUGS (4)
  1. ANGIOMAX [Suspect]
     Indication: PERCUTANEOUS CORONARY INTERVENTION
     Route: 040
     Dates: start: 20120423, end: 20120423
  2. PLAVIX [Concomitant]
  3. ASA [Concomitant]
  4. MAALOX [Concomitant]

REACTIONS (4)
  - Ejection fraction decreased [None]
  - Thrombosis in device [None]
  - Overdose [None]
  - Chest pain [None]
